FAERS Safety Report 16706027 (Version 6)
Quarter: 2020Q1

REPORT INFORMATION
  Report Type: Spontaneous
  Country: US (occurrence: US)
  Receive Date: 20190815
  Receipt Date: 20200203
  Transmission Date: 20200409
  Serious: Yes (Other)
  Sender: FDA-Public Use
  Company Number: US-PFIZER INC-2019335850

PATIENT
  Age: 10 Year
  Sex: Male
  Weight: 27.22 kg

DRUGS (3)
  1. CONCERTA [Concomitant]
     Active Substance: METHYLPHENIDATE HYDROCHLORIDE
     Indication: ATTENTION DEFICIT/HYPERACTIVITY DISORDER
     Dosage: 27 MG, 1X/DAY
     Route: 048
     Dates: start: 2017
  2. GENOTROPIN [Suspect]
     Active Substance: SOMATROPIN
     Indication: GROWTH HORMONE DEFICIENCY
     Dosage: 0.7 MG, DAILY
  3. GENOTROPIN [Suspect]
     Active Substance: SOMATROPIN
     Dosage: 0.9 MG, 1X/DAY (INJECTION EVERY NIGHT)
     Dates: start: 201803

REACTIONS (3)
  - Device issue [Unknown]
  - Product dose omission [Unknown]
  - Epiphyses premature fusion [Unknown]

NARRATIVE: CASE EVENT DATE: 201912
